FAERS Safety Report 6252326-7 (Version None)
Quarter: 2009Q2

REPORT INFORMATION
  Report Type: 
  Country: None (occurrence: None)
  Receive Date: 20090629
  Receipt Date: 20090629
  Transmission Date: 20091009
  Serious: Yes (Hospitalization, Disabling)
  Sender: FDA-Public Use
  Company Number: None

PATIENT
  Sex: Male
  Weight: 92.5338 kg

DRUGS (1)
  1. REGLAN [Suspect]
     Indication: NAUSEA
     Dosage: 1-3X DAY EVERY DAY
     Dates: start: 20060201, end: 20090501

REACTIONS (2)
  - INAPPROPRIATE SCHEDULE OF DRUG ADMINISTRATION [None]
  - PARKINSON'S DISEASE [None]
